FAERS Safety Report 19129862 (Version 3)
Quarter: 2021Q2

REPORT INFORMATION
  Report Type: Report from Study
  Country: US (occurrence: US)
  Receive Date: 20210413
  Receipt Date: 20210614
  Transmission Date: 20210717
  Serious: No
  Sender: FDA-Public Use
  Company Number: US-AGIOS-2104US02659

PATIENT

DRUGS (1)
  1. TIBSOVO [Suspect]
     Active Substance: IVOSIDENIB
     Indication: ANAPLASTIC OLIGODENDROGLIOMA
     Dosage: 500 MILLIGRAM
     Route: 048

REACTIONS (5)
  - Diarrhoea [Recovered/Resolved]
  - Fall [Unknown]
  - Gait disturbance [Unknown]
  - Dizziness [Unknown]
  - Off label use [Unknown]
